FAERS Safety Report 8240897-0 (Version None)
Quarter: 2012Q1

REPORT INFORMATION
  Report Type: 
  Country: None (occurrence: None)
  Receive Date: 20120328
  Receipt Date: 20120316
  Transmission Date: 20120608
  Serious: Yes (Other)
  Sender: FDA-Public Use
  Company Number: US-ELI_LILLY_AND_COMPANY-US201111007111

PATIENT
  Sex: Male
  Weight: 103.4 kg

DRUGS (7)
  1. VICODIN [Concomitant]
     Dosage: UNK, PRN
  2. LISINOPRIL [Concomitant]
     Dosage: 40 MG, UNK
  3. DECADRON [Concomitant]
  4. GEMZAR [Suspect]
     Indication: LUNG ADENOCARCINOMA METASTATIC
     Dosage: 1000 MG/M2, 2 WEEKS ON, 1 WEEK OFF
     Route: 042
     Dates: start: 20110915, end: 20111027
  5. ATENOLOL [Concomitant]
     Dosage: 100 MG, UNK
  6. ALIMTA [Suspect]
     Indication: LUNG NEOPLASM MALIGNANT
     Dosage: 1105 MG, UNKNOWN
     Dates: start: 20111123, end: 20120223
  7. NORVASC [Concomitant]
     Dosage: 5 MG, UNK

REACTIONS (3)
  - DISEASE PROGRESSION [None]
  - LIVER FUNCTION TEST ABNORMAL [None]
  - BILE DUCT OBSTRUCTION [None]
